FAERS Safety Report 5563593-7 (Version None)
Quarter: 2007Q4

REPORT INFORMATION
  Report Type: 
  Country: None (occurrence: None)
  Receive Date: 20071217
  Receipt Date: 20070810
  Transmission Date: 20080405
  Serious: No
  Sender: FDA-Public Use
  Company Number: US-ASTRAZENECA-2007UW15582

PATIENT
  Age: 26583 Day
  Sex: Male
  Weight: 88 kg

DRUGS (10)
  1. CRESTOR [Suspect]
     Indication: HYPERCHOLESTEROLAEMIA
     Route: 048
     Dates: start: 20070609, end: 20070625
  2. CRESTOR [Suspect]
     Route: 048
     Dates: start: 20070602, end: 20070608
  3. PLAVIX [Concomitant]
  4. ASPIRIN [Concomitant]
  5. CELEXA [Concomitant]
  6. SINGULAIR [Concomitant]
  7. NASALIDE [Concomitant]
  8. AEROBID [Concomitant]
  9. PROVENTIL [Concomitant]
     Indication: ASTHMA
     Route: 055
  10. TRAVATAN [Concomitant]
     Indication: GLAUCOMA

REACTIONS (2)
  - INJURY [None]
  - NIGHTMARE [None]
